FAERS Safety Report 22694118 (Version 7)
Quarter: 2023Q4

REPORT INFORMATION
  Report Type: Spontaneous
  Country: BR (occurrence: BR)
  Receive Date: 20230711
  Receipt Date: 20231010
  Transmission Date: 20240109
  Serious: Yes (Hospitalization, Other)
  Sender: FDA-Public Use
  Company Number: BR-BoehringerIngelheim-2023-BI-245100

PATIENT
  Age: 54 Year
  Sex: Female
  Weight: 84 kg

DRUGS (18)
  1. FENOTEROL HYDROBROMIDE\IPRATROPIUM BROMIDE [Suspect]
     Active Substance: FENOTEROL HYDROBROMIDE\IPRATROPIUM BROMIDE
     Indication: Emphysema
     Dosage: EVERY TIME SHE FEELS SHE IS NOT BREATHING WELL BECAUSE IT IS A BRONCHODILATOR, BUT THE FIXED SCHEDUL
     Route: 055
     Dates: start: 1988
  2. FENOTEROL HYDROBROMIDE\IPRATROPIUM BROMIDE [Suspect]
     Active Substance: FENOTEROL HYDROBROMIDE\IPRATROPIUM BROMIDE
     Indication: Asthma
     Dosage: TWO PUFFS EVERY 4 HOURS.?FORM OF ADMIN: AEROSOL.
     Route: 055
  3. FENOTEROL HYDROBROMIDE\IPRATROPIUM BROMIDE [Suspect]
     Active Substance: FENOTEROL HYDROBROMIDE\IPRATROPIUM BROMIDE
     Dosage: TWO PUFFS EVERY 4 HOURS.?FORM OF ADMIN: AEROSOL.
     Route: 055
  4. FENOTEROL HYDROBROMIDE\IPRATROPIUM BROMIDE [Suspect]
     Active Substance: FENOTEROL HYDROBROMIDE\IPRATROPIUM BROMIDE
     Dosage: TWO PUFFS EVERY 4 HOURS.?FORM OF ADMIN: AEROSOL.
     Route: 055
  5. ATROVENT [Suspect]
     Active Substance: IPRATROPIUM BROMIDE
     Indication: Chronic obstructive pulmonary disease
     Dosage: FORM OF ADMIN: AEROSOL.?TWO PUFFS EVERY 4 HOURS.
     Dates: start: 20230801, end: 20230813
  6. ATROVENT [Suspect]
     Active Substance: IPRATROPIUM BROMIDE
     Indication: Asthma
     Dates: start: 202307
  7. BEROTEC [Suspect]
     Active Substance: FENOTEROL HYDROBROMIDE
     Indication: Chronic obstructive pulmonary disease
     Dosage: AEROSOL, 2 PUFFS EVERY 4 HOURS.
     Dates: start: 2023
  8. BEROTEC [Suspect]
     Active Substance: FENOTEROL HYDROBROMIDE
     Indication: Asthma
     Dosage: 2 PUFFS EVERY 6 HOURS.
  9. BEROTEC [Suspect]
     Active Substance: FENOTEROL HYDROBROMIDE
     Dosage: DROPS.
  10. BEROTEC [Suspect]
     Active Substance: FENOTEROL HYDROBROMIDE
     Dosage: AEROSOL.
     Dates: start: 202307
  11. ALBUTEROL SULFATE [Suspect]
     Active Substance: ALBUTEROL SULFATE
     Indication: Asthma
     Dosage: AEROSOL/ 4 PUFFS EVERY 6 HOURS.
     Dates: start: 20230812
  12. BECLOMETHASONE DIPROPIONATE [Suspect]
     Active Substance: BECLOMETHASONE DIPROPIONATE
     Indication: Asthma
     Dosage: AEROSOL
     Dates: start: 202307, end: 202307
  13. BECLOMETHASONE DIPROPIONATE [Suspect]
     Active Substance: BECLOMETHASONE DIPROPIONATE
     Indication: Chronic obstructive pulmonary disease
     Dosage: SPRAY, 1 SQUIRT IN EACH NOSTRIL
     Route: 045
  14. ALENIA [Concomitant]
     Indication: Emphysema
     Dosage: 12MCG + 400MCG CAPSULE (3X A DAY WITH 1X IN THE MORNING, 1X AT LUNCHTIME, AND 1X AT NIGHT VIA INHALA
     Route: 055
     Dates: start: 2013
  15. ALENIA [Concomitant]
     Indication: Asthma
     Dosage: 3X A DAY, IN THE MORNING, AT NOON AND NIGHT.
     Route: 048
  16. CLONAZEPAM [Concomitant]
     Active Substance: CLONAZEPAM
     Indication: Depression
     Dosage: 1X AT NIGHT
     Route: 048
     Dates: start: 2007
  17. QUETIAPINE [Concomitant]
     Active Substance: QUETIAPINE
     Indication: Depression
     Dosage: 1X AT NIGHT
     Route: 048
  18. GLICOPIRR?NIO [Concomitant]
     Indication: Product used for unknown indication
     Dosage: 1X A DAY, IN THE MORNING

REACTIONS (36)
  - Asthmatic crisis [Not Recovered/Not Resolved]
  - Dyspnoea [Recovered/Resolved]
  - Dyspnoea [Recovered/Resolved]
  - Asphyxia [Recovered/Resolved]
  - Pneumonitis [Not Recovered/Not Resolved]
  - Drug ineffective [Unknown]
  - Asthmatic crisis [Unknown]
  - Fatigue [Not Recovered/Not Resolved]
  - Lung disorder [Recovered/Resolved]
  - Oxygen saturation abnormal [Recovered/Resolved]
  - Product use issue [Not Recovered/Not Resolved]
  - Insomnia [Recovered/Resolved]
  - Dyspnoea [Not Recovered/Not Resolved]
  - Drug ineffective [Unknown]
  - Dyspnoea [Recovered/Resolved]
  - Dyspnoea [Not Recovered/Not Resolved]
  - Headache [Recovered/Resolved]
  - Epistaxis [Recovered/Resolved]
  - Cough [Not Recovered/Not Resolved]
  - Dyspnoea [Not Recovered/Not Resolved]
  - Cough [Not Recovered/Not Resolved]
  - Tremor [Recovered/Resolved]
  - Fatigue [Not Recovered/Not Resolved]
  - Vascular pain [Not Recovered/Not Resolved]
  - Oxygen saturation decreased [Not Recovered/Not Resolved]
  - Expired product administered [Unknown]
  - Expired device used [Unknown]
  - Drug effect less than expected [Unknown]
  - Drug effect less than expected [Unknown]
  - Drug ineffective [Unknown]
  - Inappropriate schedule of product administration [Unknown]
  - Inappropriate schedule of product administration [Unknown]
  - Tachycardia [Recovered/Resolved]
  - Chest discomfort [Recovered/Resolved]
  - Drug ineffective [Unknown]
  - Tremor [Recovered/Resolved]

NARRATIVE: CASE EVENT DATE: 20230601
